FAERS Safety Report 10203347 (Version 1)
Quarter: 2014Q2

REPORT INFORMATION
  Report Type: Spontaneous
  Country: CY (occurrence: CY)
  Receive Date: 20140529
  Receipt Date: 20140529
  Transmission Date: 20141212
  Serious: Yes (Life-Threatening, Hospitalization)
  Sender: FDA-Public Use
  Company Number: PHHY2014CY064327

PATIENT
  Age: 41 Year
  Sex: Male
  Weight: 90 kg

DRUGS (10)
  1. CERTICAN [Suspect]
     Indication: IMMUNOSUPPRESSION
     Dosage: 1.5 MG, BID
     Route: 048
     Dates: start: 20140424, end: 20140520
  2. MINIPRESS [Concomitant]
     Dosage: 1 MG, UNK
     Route: 048
  3. AMLODIPIN GENERICS [Concomitant]
     Dosage: 10 MG, UNK
     Route: 048
  4. PREDNISONE [Concomitant]
     Indication: IMMUNOSUPPRESSION
     Dosage: 10 MG, UNK
     Route: 048
  5. MYFORTIC [Concomitant]
     Indication: IMMUNOSUPPRESSION
     Dosage: 720 MG, BID
     Route: 048
  6. OMEPRAZOLE [Concomitant]
     Dosage: 20 MG, UNK
     Route: 048
  7. ASPIRIN [Concomitant]
     Dosage: 75 MG, UNK
     Route: 048
  8. ALLOPURINOL [Concomitant]
     Dosage: 100 MG, UNK
     Route: 048
  9. ATENOLOL [Concomitant]
     Dosage: 25 MG, UNK
     Route: 048
  10. INSULIN [Concomitant]
     Dosage: UNK UKN, UNK

REACTIONS (8)
  - Pneumonitis [Recovering/Resolving]
  - Pyrexia [Unknown]
  - Dyspnoea [Unknown]
  - Respiratory failure [Unknown]
  - Blood urea increased [Unknown]
  - Blood creatinine increased [Unknown]
  - Oedema peripheral [Unknown]
  - Haemoglobin decreased [Unknown]
